FAERS Safety Report 14039281 (Version 1)
Quarter: 2017Q4

REPORT INFORMATION
  Report Type: Spontaneous
  Country: US (occurrence: US)
  Receive Date: 20171004
  Receipt Date: 20171004
  Transmission Date: 20180321
  Serious: Yes (Hospitalization)
  Sender: FDA-Public Use
  Company Number: US-INDIVIOR LIMITED-INDV-093768-2016

PATIENT
  Age: 39 Year
  Sex: Male

DRUGS (1)
  1. SUBOXONE [Suspect]
     Active Substance: BUPRENORPHINE HYDROCHLORIDE\NALOXONE HYDROCHLORIDE
     Indication: DRUG USE DISORDER
     Dosage: CUT DOSE IN HALF
     Route: 065

REACTIONS (4)
  - Drug dependence [Recovered/Resolved]
  - Drug dependence [Recovered/Resolved]
  - Abdominal pain [Unknown]
  - Intentional underdose [Unknown]

NARRATIVE: CASE EVENT DATE: 2016
